FAERS Safety Report 6005985-8 (Version None)
Quarter: 2008Q4

REPORT INFORMATION
  Report Type: 
  Country: None (occurrence: None)
  Receive Date: 20081217
  Receipt Date: 20081212
  Transmission Date: 20090506
  Serious: Yes (Life-Threatening, Other)
  Sender: FDA-Public Use
  Company Number: PHHY2008CH31635

PATIENT
  Age: 26 Year
  Sex: Female

DRUGS (8)
  1. RITALIN [Suspect]
     Dosage: 6X10 MG/DAY
  2. SEVOFLURANE [Suspect]
     Indication: ANAESTHESIA
     Dosage: UNK
     Dates: start: 20080911
  3. METHADON STREULI [Suspect]
     Dosage: UNK
  4. TRACRIUM [Concomitant]
     Dosage: 1 DF, ONCE/SINGLE
     Dates: start: 20080911
  5. SINTENYL [Concomitant]
     Dosage: 1 DF, ONCE/SINGLE
     Route: 048
     Dates: start: 20080911
  6. VIBRAMYCIN                              /NET/ [Concomitant]
     Indication: KERATITIS
     Dosage: 2X100 MG/D
  7. SERESTA EXPIDET [Concomitant]
     Dosage: 3X15 MG/D
  8. ZOLPIDEM [Concomitant]
     Dosage: 1X10 MG/D

REACTIONS (4)
  - AV DISSOCIATION [None]
  - HYPOKALAEMIA [None]
  - TORSADE DE POINTES [None]
  - VENTRICULAR FIBRILLATION [None]
